FAERS Safety Report 9779165 (Version 3)
Quarter: 2015Q2

REPORT INFORMATION
  Report Type: Report from Study
  Country: JP (occurrence: JP)
  Receive Date: 20131223
  Receipt Date: 20150617
  Transmission Date: 20150821
  Serious: Yes (Life-Threatening, Hospitalization, Other)
  Sender: FDA-Public Use
  Company Number: JP-BAYER-2013-155410

PATIENT
  Age: 73 Year
  Sex: Female
  Weight: 40 kg

DRUGS (21)
  1. DERMOVATE [Concomitant]
     Active Substance: CLOBETASOL
     Indication: DRUG TOXICITY PROPHYLAXIS
     Dosage: UNK
     Route: 061
     Dates: end: 20131217
  2. WHITE PETROLEUM [Concomitant]
     Active Substance: PETROLATUM
     Indication: PALMAR-PLANTAR ERYTHRODYSAESTHESIA SYNDROME
  3. BLOPRESS [Concomitant]
     Active Substance: CANDESARTAN CILEXETIL
     Indication: HYPERTENSION
     Dosage: DAILY DOSE 8 MG
     Route: 048
     Dates: end: 20131202
  4. LAC-B [Concomitant]
     Active Substance: BIFIDOBACTERIUM SPP.
     Indication: PROPHYLAXIS AGAINST DIARRHOEA
     Dosage: DAILY DOSE 2 G
     Route: 048
     Dates: end: 20131202
  5. RINDERON VG [Concomitant]
     Active Substance: BETAMETHASONE VALERATE\GENTAMICIN SULFATE
     Indication: RASH
     Dosage: UNK
     Route: 061
     Dates: start: 20131225
  6. WHITE PETROLEUM [Concomitant]
     Active Substance: PETROLATUM
     Indication: DRUG TOXICITY PROPHYLAXIS
     Dosage: UNK
     Route: 061
     Dates: end: 20140102
  7. WHITE PETROLEUM [Concomitant]
     Active Substance: PETROLATUM
     Indication: RASH
  8. HACHIAZULE [Concomitant]
     Indication: STOMATITIS
     Dosage: DAILY DOSE 2 G
     Route: 002
     Dates: end: 20131109
  9. GOSHAJINKIGAN [Concomitant]
     Active Substance: HERBALS
     Dosage: DAILY DOSE 7.5 G
     Route: 048
     Dates: end: 20131220
  10. HIRUDOID [Concomitant]
     Active Substance: GLYCOSAMINOGLYCANS
     Indication: PALMAR-PLANTAR ERYTHRODYSAESTHESIA SYNDROME
  11. MYSER [Concomitant]
     Active Substance: DIFLUPREDNATE
     Indication: PALMAR-PLANTAR ERYTHRODYSAESTHESIA SYNDROME
  12. KERATINAMIN [Concomitant]
     Active Substance: UREA
     Indication: DRUG TOXICITY PROPHYLAXIS
     Dosage: UNK
     Route: 061
     Dates: end: 20131202
  13. HIRUDOID [Concomitant]
     Active Substance: GLYCOSAMINOGLYCANS
     Indication: DRUG TOXICITY PROPHYLAXIS
     Dosage: UNK
     Route: 061
     Dates: end: 20131202
  14. KERATINAMIN [Concomitant]
     Active Substance: UREA
     Indication: PALMAR-PLANTAR ERYTHRODYSAESTHESIA SYNDROME
  15. LOXOPROFEN [Concomitant]
     Active Substance: LOXOPROFEN
     Indication: PYREXIA
     Dosage: DAILY DOSE 180 MG
     Route: 048
  16. SAHNE [Concomitant]
     Indication: DRUG TOXICITY PROPHYLAXIS
     Dosage: UNK
     Route: 061
     Dates: end: 20140102
  17. STIVARGA [Suspect]
     Active Substance: REGORAFENIB
     Indication: COLON CANCER
     Dosage: 160 MG, QD, ON FOR 3 WEEKS AND OFF FOR 1 WEEK
     Route: 048
     Dates: start: 20131116, end: 20131128
  18. MYSER [Concomitant]
     Active Substance: DIFLUPREDNATE
     Indication: DRUG TOXICITY PROPHYLAXIS
     Dosage: UNK
     Route: 061
     Dates: end: 20131202
  19. DERMOVATE [Concomitant]
     Active Substance: CLOBETASOL
     Indication: PALMAR-PLANTAR ERYTHRODYSAESTHESIA SYNDROME
  20. AMLODIPINE [Concomitant]
     Active Substance: AMLODIPINE BESYLATE
     Indication: HYPERTENSION
     Dosage: DAILY DOSE 2.5 MG
     Route: 048
     Dates: end: 20131121
  21. EPINASTINE HYDROCHLORIDE. [Concomitant]
     Active Substance: EPINASTINE HYDROCHLORIDE
     Dosage: DAILY DOSE 20 MG
     Route: 048
     Dates: end: 20131202

REACTIONS (28)
  - Hepatic function abnormal [Not Recovered/Not Resolved]
  - Blood creatinine increased [Not Recovered/Not Resolved]
  - Platelet count decreased [Recovering/Resolving]
  - C-reactive protein increased [Not Recovered/Not Resolved]
  - Hypoxia [Recovering/Resolving]
  - Dehydration [Recovering/Resolving]
  - Pyrexia [Recovered/Resolved]
  - Headache [Recovered/Resolved]
  - Blood thyroid stimulating hormone increased [Recovering/Resolving]
  - Mucous membrane disorder [Recovering/Resolving]
  - Blood lactate dehydrogenase increased [Recovering/Resolving]
  - Malaise [Not Recovered/Not Resolved]
  - Cardiomyopathy [Not Recovered/Not Resolved]
  - Decreased appetite [Recovering/Resolving]
  - Nausea [Recovering/Resolving]
  - Abdominal pain [Recovering/Resolving]
  - Blood creatine phosphokinase increased [Not Recovered/Not Resolved]
  - Stomatitis [Recovering/Resolving]
  - Palmar-plantar erythrodysaesthesia syndrome [Recovered/Resolved]
  - Musculoskeletal pain [Recovered/Resolved]
  - Cerebral haemorrhage [Recovering/Resolving]
  - Rash [Recovering/Resolving]
  - Hypertension [Recovered/Resolved]
  - Muscle spasms [Recovered/Resolved]
  - Disseminated intravascular coagulation [Recovering/Resolving]
  - Diarrhoea [Recovering/Resolving]
  - Cardiac failure [Recovering/Resolving]
  - Skin erosion [Recovering/Resolving]

NARRATIVE: CASE EVENT DATE: 20131117
